FAERS Safety Report 18195540 (Version 2)
Quarter: 2021Q1

REPORT INFORMATION
  Report Type: Spontaneous
  Country: US (occurrence: US)
  Receive Date: 20200826
  Receipt Date: 20210302
  Transmission Date: 20210419
  Serious: Yes (Other)
  Sender: FDA-Public Use
  Company Number: US-ASTRAZENECA-2020SF04952

PATIENT
  Age: 25617 Day
  Sex: Female
  Weight: 101.6 kg

DRUGS (49)
  1. PIOGLITAZONE. [Concomitant]
     Active Substance: PIOGLITAZONE
  2. LORAZEPAM. [Concomitant]
     Active Substance: LORAZEPAM
  3. RANITIDINE. [Concomitant]
     Active Substance: RANITIDINE
  4. AMLODIPINE [Concomitant]
     Active Substance: AMLODIPINE BESYLATE
  5. CYCLOSPORIN [Concomitant]
     Active Substance: CYCLOSPORINE
  6. HYDROCHLOROTHIAZIDE. [Concomitant]
     Active Substance: HYDROCHLOROTHIAZIDE
  7. SERTRALINE [Concomitant]
     Active Substance: SERTRALINE HYDROCHLORIDE
  8. AMOXICILLIN?CLAVULANATE [Concomitant]
     Active Substance: AMOXICILLIN\CLAVULANIC ACID
  9. NIACIN. [Concomitant]
     Active Substance: NIACIN
  10. METRONIDAZOLE. [Concomitant]
     Active Substance: METRONIDAZOLE
  11. CEPHALEXIN. [Concomitant]
     Active Substance: CEPHALEXIN
  12. FUROSEMIDE. [Concomitant]
     Active Substance: FUROSEMIDE
  13. PENICILLIN VK [Concomitant]
     Active Substance: PENICILLIN V POTASSIUM
  14. SYMLIN [Concomitant]
     Active Substance: PRAMLINTIDE ACETATE
  15. PAROXETINE. [Concomitant]
     Active Substance: PAROXETINE
  16. ASPIRIN. [Concomitant]
     Active Substance: ASPIRIN
  17. NITROFURANTOIN. [Concomitant]
     Active Substance: NITROFURANTOIN
  18. NEXIUM [Suspect]
     Active Substance: ESOMEPRAZOLE MAGNESIUM
     Indication: GASTROOESOPHAGEAL REFLUX DISEASE
     Route: 048
     Dates: start: 2008, end: 2011
  19. GEMFIBROZIL. [Concomitant]
     Active Substance: GEMFIBROZIL
     Dates: start: 20090115
  20. OXYBUTYNIN. [Concomitant]
     Active Substance: OXYBUTYNIN CHLORIDE
  21. FLUTICASONE. [Concomitant]
     Active Substance: FLUTICASONE
  22. NIFEDIPINE. [Concomitant]
     Active Substance: NIFEDIPINE
  23. METOCLOPRAMIDE. [Concomitant]
     Active Substance: METOCLOPRAMIDE
  24. CLOPIDOGREL [Concomitant]
     Active Substance: CLOPIDOGREL BISULFATE
  25. METOPROLOL. [Concomitant]
     Active Substance: METOPROLOL
  26. RESTASIS [Concomitant]
     Active Substance: CYCLOSPORINE
  27. PRAMLINTIDE [Concomitant]
     Active Substance: PRAMLINTIDE
  28. ALBUTEROL. [Concomitant]
     Active Substance: ALBUTEROL
  29. ONGLYZA [Concomitant]
     Active Substance: SAXAGLIPTIN HYDROCHLORIDE
  30. METFORMIN [Concomitant]
     Active Substance: METFORMIN HYDROCHLORIDE
     Dates: start: 20090115
  31. CLONIDINE. [Concomitant]
     Active Substance: CLONIDINE
  32. APAP/CODEINE [Concomitant]
     Active Substance: ACETAMINOPHEN\CODEINE PHOSPHATE
  33. FENOFIBRATE. [Concomitant]
     Active Substance: FENOFIBRATE
  34. TRIAMCINOLONE [Concomitant]
     Active Substance: TRIAMCINOLONE
  35. IBUPROFEN. [Concomitant]
     Active Substance: IBUPROFEN
  36. VITAMIN D [Concomitant]
     Active Substance: VITAMIN D NOS
  37. VENLAFAXINE [Concomitant]
     Active Substance: VENLAFAXINE HYDROCHLORIDE
  38. METOLAZONE. [Concomitant]
     Active Substance: METOLAZONE
  39. NEXIUM [Suspect]
     Active Substance: ESOMEPRAZOLE MAGNESIUM
     Indication: GASTROOESOPHAGEAL REFLUX DISEASE
     Route: 048
     Dates: start: 2007, end: 2016
  40. PRAVASTATIN. [Concomitant]
     Active Substance: PRAVASTATIN
     Dates: start: 20090115
  41. NITROSTAT [Concomitant]
     Active Substance: NITROGLYCERIN
  42. LOSARTAN. [Concomitant]
     Active Substance: LOSARTAN
  43. BACLOFEN. [Concomitant]
     Active Substance: BACLOFEN
  44. MECLIZINE [Concomitant]
     Active Substance: MECLIZINE HYDROCHLORIDE
  45. CIPROFLOXACIN. [Concomitant]
     Active Substance: CIPROFLOXACIN
  46. FOSINOPRIL [Concomitant]
     Active Substance: FOSINOPRIL
  47. NEURONTIN [Concomitant]
     Active Substance: GABAPENTIN
  48. ESCITALOPRAM [Concomitant]
     Active Substance: ESCITALOPRAM OXALATE
  49. INSULIN [Concomitant]
     Active Substance: INSULIN NOS

REACTIONS (6)
  - Nephrogenic anaemia [Unknown]
  - Chronic kidney disease [Not Recovered/Not Resolved]
  - Tubulointerstitial nephritis [Unknown]
  - Acute kidney injury [Unknown]
  - Renal failure [Unknown]
  - Renal tubular necrosis [Unknown]

NARRATIVE: CASE EVENT DATE: 20160825
